FAERS Safety Report 15990981 (Version 1)
Quarter: 2019Q1

REPORT INFORMATION
  Report Type: Spontaneous
  Country: IE (occurrence: IE)
  Receive Date: 20190221
  Receipt Date: 20190221
  Transmission Date: 20190418
  Serious: Yes (Death)
  Sender: FDA-Public Use
  Company Number: IE-PFIZER INC-2019077220

PATIENT
  Sex: Female

DRUGS (1)
  1. CRIZOTINIB [Suspect]
     Active Substance: CRIZOTINIB
     Indication: LUNG ADENOCARCINOMA STAGE IV
     Dosage: UNK

REACTIONS (2)
  - Second primary malignancy [Fatal]
  - Glioblastoma multiforme [Fatal]
